FAERS Safety Report 23439782 (Version 3)
Quarter: 2024Q3

REPORT INFORMATION
  Report Type: Report from Study
  Country: US (occurrence: US)
  Receive Date: 20240124
  Receipt Date: 20240810
  Transmission Date: 20241017
  Serious: Yes (Other)
  Sender: ABBVIE
  Company Number: US-ABBVIE-5601544

PATIENT
  Sex: Male

DRUGS (2)
  1. RINVOQ [Suspect]
     Active Substance: UPADACITINIB
     Indication: Psoriatic arthropathy
     Dosage: END DATE:2023
     Route: 048
     Dates: start: 20230620
  2. RINVOQ [Suspect]
     Active Substance: UPADACITINIB
     Indication: Psoriatic arthropathy
     Route: 048
     Dates: start: 202308

REACTIONS (10)
  - Skin cancer [Recovering/Resolving]
  - Hypoacusis [Recovering/Resolving]
  - Anaemia [Recovering/Resolving]
  - Feeling hot [Recovering/Resolving]
  - Post procedural complication [Recovering/Resolving]
  - Asthenia [Recovering/Resolving]
  - Crohn^s disease [Unknown]
  - Muscle spasms [Unknown]
  - Bone marrow disorder [Unknown]
  - Insomnia [Unknown]
